FAERS Safety Report 5606105-1 (Version None)
Quarter: 2008Q1

REPORT INFORMATION
  Report Type: 
  Country: None (occurrence: None)
  Receive Date: 20080129
  Receipt Date: 20080128
  Transmission Date: 20080703
  Serious: Yes (Death, Other)
  Sender: FDA-Public Use
  Company Number: KR-BRISTOL-MYERS SQUIBB COMPANY-14056907

PATIENT
  Age: 59 Year
  Sex: Male

DRUGS (2)
  1. CARBOPLATIN [Suspect]
  2. PACLITAXEL [Suspect]

REACTIONS (6)
  - BACTERIAL SEPSIS [None]
  - CARDIAC ARREST [None]
  - DEATH [None]
  - HAEMOLYSIS [None]
  - LIVER ABSCESS [None]
  - NEUTROPENIA [None]
